FAERS Safety Report 13106540 (Version 1)
Quarter: 2017Q1

REPORT INFORMATION
  Report Type: Spontaneous
  Country: DE (occurrence: DE)
  Receive Date: 20170111
  Receipt Date: 20170111
  Transmission Date: 20170428
  Serious: Yes (Other)
  Sender: FDA-Public Use
  Company Number: PHHY2016DE182444

PATIENT
  Age: 28 Year
  Sex: Female

DRUGS (5)
  1. METHYLPREDNISOLONE. [Concomitant]
     Active Substance: METHYLPREDNISOLONE
     Indication: BLOOD TRIGLYCERIDES INCREASED
     Dosage: 1 G, QD
     Route: 042
     Dates: start: 201303
  2. INSULIN GLARGINE [Concomitant]
     Active Substance: INSULIN GLARGINE
     Indication: TYPE 1 DIABETES MELLITUS
     Route: 065
  3. INSULIN ASPART [Concomitant]
     Active Substance: INSULIN ASPART
     Indication: TYPE 1 DIABETES MELLITUS
     Route: 065
  4. ENALAPRIL [Concomitant]
     Active Substance: ENALAPRIL
     Indication: HYPERTENSION
     Dosage: 2.5 MG, QD
     Route: 065
  5. GILENYA [Suspect]
     Active Substance: FINGOLIMOD HYDROCHLORIDE
     Indication: RELAPSING-REMITTING MULTIPLE SCLEROSIS
     Dosage: UNK
     Route: 065
     Dates: start: 201307

REACTIONS (3)
  - Cystoid macular oedema [Recovered/Resolved]
  - Diabetic retinopathy [Unknown]
  - Visual acuity reduced [Recovered/Resolved]
